FAERS Safety Report 11632214 (Version 1)
Quarter: 2015Q4

REPORT INFORMATION
  Report Type: Spontaneous
  Country: US (occurrence: None)
  Receive Date: 20151014
  Receipt Date: 20151014
  Transmission Date: 20160304
  Serious: Yes (Hospitalization)
  Sender: FDA-Public Use
  Company Number: None

PATIENT
  Age: 67 Year
  Sex: Male

DRUGS (1)
  1. NOVOLOG [Suspect]
     Active Substance: INSULIN ASPART
     Dosage: INJECT 75 UNITS DAILY IN PUMP

REACTIONS (3)
  - Product quality issue [None]
  - Hyperglycaemia [None]
  - Drug ineffective [None]

NARRATIVE: CASE EVENT DATE: 20151003
